FAERS Safety Report 7656241-3 (Version None)
Quarter: 2011Q3

REPORT INFORMATION
  Report Type: 
  Country: None (occurrence: None)
  Receive Date: 20110804
  Receipt Date: 20110722
  Transmission Date: 20111222
  Serious: Yes (Death)
  Sender: FDA-Public Use
  Company Number: BR-SANOFI-AVENTIS-2011SA048077

PATIENT
  Age: 72 Year
  Sex: Male
  Weight: 69 kg

DRUGS (5)
  1. ASPIRIN [Concomitant]
  2. SIMVASTATIN [Concomitant]
  3. DILTIAZEM [Concomitant]
  4. ENALAPRIL MALEATE [Concomitant]
  5. DRONEDARONE HCL [Suspect]
     Indication: ATRIAL FIBRILLATION
     Route: 048
     Dates: start: 20110603

REACTIONS (2)
  - DEATH [None]
  - CARDIAC FAILURE [None]
